FAERS Safety Report 4955713-X (Version None)
Quarter: 2006Q1

REPORT INFORMATION
  Report Type: 
  Country: None (occurrence: None)
  Receive Date: 20060323
  Receipt Date: 20060315
  Transmission Date: 20060701
  Serious: Yes (Hospitalization)
  Sender: FDA-Public Use
  Company Number: 200610915GDS

PATIENT
  Age: 55 Year
  Sex: Male

DRUGS (1)
  1. ALEVE [Suspect]
     Indication: PAIN
     Dosage: 220 MG, TOTAL DAILY, ORAL
     Route: 048
     Dates: end: 20060215

REACTIONS (1)
  - SHOCK [None]
